FAERS Safety Report 7704964-X (Version None)
Quarter: 2011Q3

REPORT INFORMATION
  Report Type: 
  Country: None (occurrence: None)
  Receive Date: 20110823
  Receipt Date: 20110819
  Transmission Date: 20111222
  Serious: No
  Sender: FDA-Public Use
  Company Number: US-PFIZER INC-2011192170

PATIENT
  Sex: Female

DRUGS (2)
  1. NEURONTIN [Suspect]
     Dosage: UNK
  2. LYRICA [Interacting]
     Dosage: UNK

REACTIONS (9)
  - HYPOAESTHESIA [None]
  - INSOMNIA [None]
  - DRUG INTERACTION [None]
  - SWELLING FACE [None]
  - VISION BLURRED [None]
  - DIZZINESS [None]
  - CHEST DISCOMFORT [None]
  - FEELING ABNORMAL [None]
  - DIARRHOEA [None]
